FAERS Safety Report 6669362-9 (Version None)
Quarter: 2010Q2

REPORT INFORMATION
  Report Type: 
  Country: None (occurrence: None)
  Receive Date: 20100406
  Receipt Date: 20100329
  Transmission Date: 20101027
  Serious: Yes (Hospitalization)
  Sender: FDA-Public Use
  Company Number: A0852406A

PATIENT
  Age: 19 Year
  Sex: Male

DRUGS (3)
  1. ADVAIR DISKUS 100/50 [Suspect]
     Indication: ASTHMA
     Route: 055
     Dates: start: 20060101, end: 20091201
  2. METFORMIN HCL [Concomitant]
  3. LOPID [Concomitant]

REACTIONS (3)
  - BLOOD GLUCOSE INCREASED [None]
  - IMMUNE SYSTEM DISORDER [None]
  - PHARYNGITIS STREPTOCOCCAL [None]
